FAERS Safety Report 14012149 (Version 2)
Quarter: 2017Q4

REPORT INFORMATION
  Report Type: Spontaneous
  Country: FR (occurrence: FR)
  Receive Date: 20170926
  Receipt Date: 20171108
  Transmission Date: 20180321
  Serious: Yes (Hospitalization)
  Sender: FDA-Public Use
  Company Number: FR-SA-2017SA171043

PATIENT
  Age: 80 Year
  Sex: Male
  Weight: 90 kg

DRUGS (3)
  1. KARDEGIC [Concomitant]
     Active Substance: ASPIRIN DL-LYSINE
     Route: 065
     Dates: start: 20170819
  2. HEPARINE CHOAY [Suspect]
     Active Substance: HEPARIN SODIUM
     Indication: PULMONARY EMBOLISM
     Route: 042
     Dates: start: 20170829, end: 20170830
  3. LOVENOX [Suspect]
     Active Substance: ENOXAPARIN SODIUM
     Route: 051
     Dates: start: 20170822, end: 20170828

REACTIONS (3)
  - Heparin-induced thrombocytopenia [Recovered/Resolved]
  - Pulmonary embolism [Recovering/Resolving]
  - Deep vein thrombosis [Recovering/Resolving]

NARRATIVE: CASE EVENT DATE: 20170828
